FAERS Safety Report 6925896-0 (Version None)
Quarter: 2010Q3

REPORT INFORMATION
  Report Type: 
  Country: None (occurrence: None)
  Receive Date: 20100816
  Receipt Date: 20100803
  Transmission Date: 20110219
  Serious: Yes (Other)
  Sender: FDA-Public Use
  Company Number: PHHY2010IT52089

PATIENT
  Sex: Female

DRUGS (4)
  1. RASILEZ [Suspect]
     Indication: HYPERTENSION
     Dosage: 300 MG DAILY
     Route: 048
     Dates: start: 20100616, end: 20100802
  2. VALSARTAN AND HYDROCHLOROTHIAZIDE [Concomitant]
     Dosage: 160/25 MG, UNK
     Route: 048
     Dates: start: 20071106, end: 20100803
  3. LOBIVON [Concomitant]
     Dosage: 5 MG, 1.5 POSOLOGIC UNITS
     Route: 048
     Dates: start: 20071106, end: 20100803
  4. ASPIRIN [Concomitant]
     Dosage: 75 MG, 1 POSOLOGIC UNIT
     Route: 048
     Dates: start: 20100324, end: 20100803

REACTIONS (7)
  - ASTHENIA [None]
  - CARDIAC FAILURE CONGESTIVE [None]
  - DYSPNOEA AT REST [None]
  - DYSPNOEA EXERTIONAL [None]
  - EJECTION FRACTION DECREASED [None]
  - LEFT VENTRICULAR FAILURE [None]
  - MITRAL VALVE INCOMPETENCE [None]
